FAERS Safety Report 10172562 (Version 1)
Quarter: 2014Q2

REPORT INFORMATION
  Report Type: Spontaneous
  Country: US (occurrence: US)
  Receive Date: 20140515
  Receipt Date: 20140515
  Transmission Date: 20141212
  Serious: Yes (Other)
  Sender: FDA-Public Use
  Company Number: US-AMGEN INC.-USASP2014033460

PATIENT
  Age: 59 Year
  Sex: Female

DRUGS (1)
  1. PROLIA [Suspect]
     Indication: OSTEOPOROSIS
     Dosage: UNK
     Route: 065
     Dates: start: 201212

REACTIONS (6)
  - Gastric perforation [Unknown]
  - Bone pain [Unknown]
  - Muscle spasms [Unknown]
  - Arthralgia [Unknown]
  - Medial tibial stress syndrome [Unknown]
  - Blood thyroid stimulating hormone decreased [Unknown]
